FAERS Safety Report 6933204-4 (Version None)
Quarter: 2010Q3

REPORT INFORMATION
  Report Type: 
  Country: None (occurrence: None)
  Receive Date: 20100820
  Receipt Date: 20100816
  Transmission Date: 20110219
  Serious: Yes (Other)
  Sender: FDA-Public Use
  Company Number: US-ASTRAZENECA-2009UW09195

PATIENT
  Age: 46 Year
  Sex: Female
  Weight: 112.9 kg

DRUGS (17)
  1. SEROQUEL [Suspect]
     Indication: INSOMNIA
     Route: 048
     Dates: start: 20040101, end: 20060101
  2. SEROQUEL [Suspect]
     Indication: DEPRESSION
     Route: 048
     Dates: start: 20040101, end: 20060101
  3. SEROQUEL [Suspect]
     Route: 048
     Dates: start: 20040823, end: 20050401
  4. SEROQUEL [Suspect]
     Route: 048
     Dates: start: 20040823, end: 20050401
  5. SEROQUEL [Suspect]
     Dosage: 25-100 MG
     Route: 048
     Dates: start: 20060101, end: 20070801
  6. SEROQUEL [Suspect]
     Dosage: 25-100 MG
     Route: 048
     Dates: start: 20060101, end: 20070801
  7. XANAX [Concomitant]
     Dates: start: 20061001
  8. TOPROL-XL [Concomitant]
     Dates: start: 20061001
  9. DOXYCYCLINE HYCLATE [Concomitant]
     Dates: start: 20040216
  10. MECLIZINE HCL [Concomitant]
     Dates: start: 20040315
  11. PREMARIN [Concomitant]
     Dates: start: 20030929
  12. WELLBUTRIN XL [Concomitant]
     Dates: start: 20040708
  13. WELLBUTRIN XL [Concomitant]
     Dates: start: 20090101
  14. TRAZODONE HCL/DESYREL [Concomitant]
     Dates: start: 20040708
  15. TRAZODONE HCL/DESYREL [Concomitant]
     Dates: start: 20090101
  16. LEXAPRO [Concomitant]
     Dates: start: 20040930
  17. CYMBALTA [Concomitant]
     Dates: start: 20090101

REACTIONS (7)
  - ATRIOVENTRICULAR BLOCK [None]
  - DIABETES MELLITUS [None]
  - MUSCLE ATROPHY [None]
  - NERVE INJURY [None]
  - NEUROPATHY PERIPHERAL [None]
  - TYPE 1 DIABETES MELLITUS [None]
  - TYPE 2 DIABETES MELLITUS [None]
